FAERS Safety Report 10186265 (Version 2)
Quarter: 2014Q2

REPORT INFORMATION
  Report Type: Spontaneous
  Country: US (occurrence: US)
  Receive Date: 20140521
  Receipt Date: 20140620
  Transmission Date: 20141212
  Serious: Yes (Hospitalization, Other)
  Sender: FDA-Public Use
  Company Number: US-PFIZER INC-2014137152

PATIENT
  Age: 70 Year
  Sex: Female
  Weight: 69.84 kg

DRUGS (10)
  1. LIPITOR [Suspect]
     Indication: BLOOD CHOLESTEROL INCREASED
     Dosage: 40 MG, 1X/DAY
     Route: 048
     Dates: start: 2000, end: 20060113
  2. LIPITOR [Suspect]
     Indication: BLOOD TRIGLYCERIDES INCREASED
  3. BACTRIM [Suspect]
     Indication: URINARY TRACT INFECTION
     Dosage: UNK
  4. LAMISIL [Suspect]
     Dosage: UNK
  5. GLYBURIDE [Concomitant]
     Indication: DIABETES MELLITUS
     Dosage: UNK
  6. LISINOPRIL [Concomitant]
     Indication: HYPERTENSION
     Dosage: UNK
  7. FLAXSEED OIL [Concomitant]
     Dosage: UNK
  8. VISTARIL [Concomitant]
     Dosage: UNK
  9. TRIGLIDE [Concomitant]
     Dosage: UNK
  10. VICTOZA [Concomitant]
     Dosage: UNK

REACTIONS (2)
  - Renal failure [Unknown]
  - Renal impairment [Not Recovered/Not Resolved]
